FAERS Safety Report 7621173-3 (Version None)
Quarter: 2011Q3

REPORT INFORMATION
  Report Type: 
  Country: None (occurrence: None)
  Receive Date: 20110719
  Receipt Date: 20110715
  Transmission Date: 20111222
  Serious: Yes (Death, Other)
  Sender: FDA-Public Use
  Company Number: JP-CELGENEUS-087-21880-11030160

PATIENT
  Sex: Male

DRUGS (9)
  1. REVLIMID [Suspect]
     Indication: MULTIPLE MYELOMA
     Dosage: 10 MILLIGRAM
     Route: 048
     Dates: start: 20110120, end: 20110127
  2. GRAN [Concomitant]
     Indication: FEBRILE NEUTROPENIA
     Route: 065
     Dates: start: 20110101
  3. MORPHINE [Concomitant]
     Route: 041
     Dates: start: 20110208
  4. DEXAMETHASONE SODIUM PHOSPHATE [Concomitant]
     Route: 065
     Dates: start: 20110207
  5. DEXAMETHASONE [Concomitant]
     Indication: MULTIPLE MYELOMA
     Dosage: 40 MILLIGRAM
     Route: 041
     Dates: start: 20110120, end: 20110120
  6. MEROPENEM [Concomitant]
     Indication: FEBRILE NEUTROPENIA
     Route: 065
     Dates: start: 20110101
  7. FLURBIPROFEN [Concomitant]
     Route: 065
     Dates: start: 20110207
  8. MORPHINE [Concomitant]
     Indication: SEDATION
  9. OXYCONTIN [Concomitant]
     Indication: ILL-DEFINED DISORDER
     Dosage: 5 MILLIGRAM
     Route: 041
     Dates: start: 20110120, end: 20110210

REACTIONS (2)
  - INFLUENZA [None]
  - NEUTROPENIA [None]
